FAERS Safety Report 16024127 (Version 1)
Quarter: 2019Q1

REPORT INFORMATION
  Report Type: Spontaneous
  Country: US (occurrence: US)
  Receive Date: 20190301
  Receipt Date: 20190301
  Transmission Date: 20190418
  Serious: No
  Sender: FDA-Public Use
  Company Number: US-IMPAX LABORATORIES, LLC-2018-IPXL-02088

PATIENT
  Age: 32 Year
  Sex: Female

DRUGS (1)
  1. EMVERM [Suspect]
     Active Substance: MEBENDAZOLE
     Indication: TRICHURIASIS
     Dosage: UNK, 1 DF, TWICE DAILY
     Route: 048
     Dates: start: 201804, end: 2018

REACTIONS (1)
  - Hepatic enzyme increased [Recovering/Resolving]

NARRATIVE: CASE EVENT DATE: 20180601
